FAERS Safety Report 9311596 (Version 2)
Quarter: 2013Q1

REPORT INFORMATION
  Report Type: Spontaneous
  Country: GB (occurrence: None)
  Receive Date: 20121227
  Receipt Date: 20130103
  Transmission Date: 20140127
  Serious: Yes (Disabling)
  Sender: FDA-Public Use
  Company Number: AUR-APL-2012-01983

PATIENT
  Sex: Male
  Weight: 75 kg

DRUGS (2)
  1. SIMVASTATIN [Suspect]
     Indication: HYPERLIPIDAEMIA
     Route: 048
     Dates: start: 2010, end: 20111019
  2. METFORMIN [Concomitant]

REACTIONS (2)
  - Lichenoid keratosis [None]
  - Drug eruption [None]
